FAERS Safety Report 7301120-4 (Version None)
Quarter: 2011Q1

REPORT INFORMATION
  Report Type: 
  Country: None (occurrence: None)
  Receive Date: 20110218
  Receipt Date: 20110209
  Transmission Date: 20110831
  Serious: Yes (Hospitalization, Disabling)
  Sender: FDA-Public Use
  Company Number: CA-BRISTOL-MYERS SQUIBB COMPANY-15446065

PATIENT
  Age: 84 Year
  Sex: Female

DRUGS (10)
  1. LEVOTHYROXINE SODIUM [Concomitant]
  2. TYLENOL (CAPLET) [Concomitant]
  3. ZOPICLONE [Concomitant]
  4. CALCIUM [Concomitant]
  5. THYROID [Concomitant]
     Dosage: 1 DF =.137 UNIT NOT MENTIONED
  6. TYLENOL [Concomitant]
  7. RAMIPRIL [Concomitant]
  8. ORENCIA [Suspect]
     Indication: RHEUMATOID ARTHRITIS
     Dosage: 03AUG10,LSTDS:07DEC10,09FEB11,INF:5
     Route: 042
     Dates: start: 20100701, end: 20101207
  9. VERAPAMIL [Concomitant]
  10. ISOPTIN [Concomitant]

REACTIONS (4)
  - BACK PAIN [None]
  - SKIN ULCER [None]
  - DRUG INEFFECTIVE [None]
  - PRURITUS [None]
